FAERS Safety Report 5049393-5 (Version None)
Quarter: 2006Q3

REPORT INFORMATION
  Report Type: 
  Country: None (occurrence: None)
  Receive Date: 20060706
  Receipt Date: 20060628
  Transmission Date: 20061208
  Serious: Yes (Hospitalization)
  Sender: FDA-Public Use
  Company Number: 200610494BFR

PATIENT
  Age: 49 Year
  Sex: Male
  Weight: 55 kg

DRUGS (18)
  1. SORAFENIB [Suspect]
     Indication: RENAL CELL CARCINOMA STAGE UNSPECIFIED
     Dosage: SEE IMAGE
     Route: 048
     Dates: start: 20060324, end: 20060421
  2. SORAFENIB [Suspect]
     Indication: RENAL CELL CARCINOMA STAGE UNSPECIFIED
     Dosage: SEE IMAGE
     Route: 048
     Dates: start: 20060421, end: 20060427
  3. SORAFENIB [Suspect]
     Indication: RENAL CELL CARCINOMA STAGE UNSPECIFIED
     Dosage: SEE IMAGE
     Route: 048
     Dates: start: 20060512, end: 20060526
  4. MONO-TILDIEM [Concomitant]
  5. TRIATEC [Concomitant]
  6. FONZYLANE [Concomitant]
  7. ASPIRIN [Concomitant]
  8. INSULIN [Concomitant]
  9. CORDIPATCH [Concomitant]
  10. LEXOMIL [Concomitant]
  11. DOLIPRANE [Concomitant]
  12. LASILIX [Concomitant]
  13. ZOLOFT [Concomitant]
  14. URBANYL [Concomitant]
  15. AUGMENTIN '125' [Concomitant]
  16. NEXIUM [Concomitant]
  17. PRIMPERAN TAB [Concomitant]
  18. VOGALIB [Concomitant]

REACTIONS (3)
  - ANAEMIA [None]
  - FEBRILE NEUTROPENIA [None]
  - VOMITING [None]
